FAERS Safety Report 17123396 (Version 1)
Quarter: 2019Q4

REPORT INFORMATION
  Report Type: Other
  Country: US (occurrence: US)
  Receive Date: 20191206
  Receipt Date: 20191206
  Transmission Date: 20200122
  Serious: No
  Sender: FDA-Public Use
  Company Number: US-US-PROVELL PHARMACEUTICALS LLC-9130475

PATIENT
  Age: 42 Year
  Sex: Female

DRUGS (6)
  1. LEVOTHYROXINE. [Suspect]
     Active Substance: LEVOTHYROXINE
     Dosage: INCREASING DOSE
  2. TRIIODOTHYRONINE [Suspect]
     Active Substance: LIOTHYRONINE SODIUM
     Indication: POST PROCEDURAL HYPOTHYROIDISM
     Route: 048
  3. ARMOUR THYROID [Suspect]
     Active Substance: THYROID, PORCINE
     Indication: POST PROCEDURAL HYPOTHYROIDISM
     Route: 048
  4. TIROSINT [Suspect]
     Active Substance: LEVOTHYROXINE SODIUM
     Indication: POST PROCEDURAL HYPOTHYROIDISM
     Route: 048
  5. LEVOTHYROXINE. [Suspect]
     Active Substance: LEVOTHYROXINE
     Indication: POST PROCEDURAL HYPOTHYROIDISM
     Route: 048
  6. LEVOTHYROXINE. [Suspect]
     Active Substance: LEVOTHYROXINE
     Route: 030

REACTIONS (2)
  - Blood thyroid stimulating hormone increased [Recovered/Resolved]
  - Malabsorption from administration site [Unknown]
